FAERS Safety Report 13026036 (Version 4)
Quarter: 2023Q4

REPORT INFORMATION
  Report Type: Spontaneous
  Country: US (occurrence: US)
  Receive Date: 20161214
  Receipt Date: 20231123
  Transmission Date: 20240109
  Serious: Yes (Other)
  Sender: FDA-Public Use
  Company Number: US-JNJFOC-20150808939

PATIENT
  Age: 6 Decade
  Sex: Male

DRUGS (9)
  1. RISPERDAL [Suspect]
     Active Substance: RISPERIDONE
     Indication: Post-traumatic stress disorder
     Dosage: 3-4 TIMES 0.5 TO 03 MG A DAY
     Route: 048
     Dates: start: 2005
  2. RISPERDAL [Suspect]
     Active Substance: RISPERIDONE
     Indication: Bipolar I disorder
     Dosage: VARYING DOSAGE OF 0.5 MG, 1 MG AND 3 MG
     Route: 048
     Dates: start: 20060920, end: 201506
  3. RISPERIDONE [Suspect]
     Active Substance: RISPERIDONE
     Indication: Post-traumatic stress disorder
     Dosage: 3 TABLETS BY MOUTH AT BEDTIME.
     Route: 048
     Dates: start: 20030811
  4. RISPERIDONE [Suspect]
     Active Substance: RISPERIDONE
     Route: 048
     Dates: start: 20030822
  5. RISPERIDONE [Suspect]
     Active Substance: RISPERIDONE
     Dosage: 1 AND 3 MG
     Route: 048
     Dates: start: 20060920
  6. RISPERIDONE [Suspect]
     Active Substance: RISPERIDONE
     Dosage: HALF TABLET BY MOUTH AS NEEDED
     Route: 048
     Dates: start: 20070119
  7. RISPERIDONE [Suspect]
     Active Substance: RISPERIDONE
     Dosage: 0.5 MG EVERY AM, 1 MG EVERY PM AND 1.5 MG EVERY BEDTIME
     Route: 048
     Dates: start: 20100712, end: 20101117
  8. SPIRONOLACTONE [Suspect]
     Active Substance: SPIRONOLACTONE
     Indication: Blood pressure measurement
     Route: 065
  9. SPIRONOLACTONE [Suspect]
     Active Substance: SPIRONOLACTONE
     Indication: Oedema

REACTIONS (10)
  - Seizure [Unknown]
  - Dystonia [Unknown]
  - Spinal disorder [Unknown]
  - Body height decreased [Unknown]
  - Abnormal weight gain [Not Recovered/Not Resolved]
  - Sedation [Unknown]
  - Gynaecomastia [Not Recovered/Not Resolved]
  - Off label use [Unknown]
  - Product use in unapproved indication [Unknown]
  - Off label use [Unknown]

NARRATIVE: CASE EVENT DATE: 20050101
